FAERS Safety Report 6442513-7 (Version None)
Quarter: 2009Q4

REPORT INFORMATION
  Report Type: 
  Country: None (occurrence: None)
  Receive Date: 20091112
  Receipt Date: 20091028
  Transmission Date: 20100525
  Serious: Yes (Other)
  Sender: FDA-Public Use
  Company Number: 2009AL007037

PATIENT
  Sex: Female

DRUGS (3)
  1. FEVERALL [Suspect]
     Indication: DRUG EXPOSURE DURING PREGNANCY
     Dosage: 1 GM; QD; TRPL
     Route: 064
  2. ARAVA [Concomitant]
  3. PREDNISOLONE [Concomitant]

REACTIONS (4)
  - CARDIAC MURMUR [None]
  - CARDIAC VALVE DISEASE [None]
  - MATERNAL DRUGS AFFECTING FOETUS [None]
  - PREMATURE BABY [None]
